FAERS Safety Report 16970168 (Version 1)
Quarter: 2019Q4

REPORT INFORMATION
  Report Type: Report from Study
  Country: CA (occurrence: CA)
  Receive Date: 20191029
  Receipt Date: 20191029
  Transmission Date: 20200122
  Serious: Yes (Other)
  Sender: FDA-Public Use
  Company Number: PHHY2012CA036958

PATIENT
  Sex: Female

DRUGS (1)
  1. GILENYA [Suspect]
     Active Substance: FINGOLIMOD HYDROCHLORIDE
     Indication: RELAPSING-REMITTING MULTIPLE SCLEROSIS
     Dosage: 0.5 MG, QD
     Route: 048
     Dates: start: 20110805

REACTIONS (13)
  - Multiple sclerosis relapse [Recovering/Resolving]
  - Asthenia [Unknown]
  - Hemiparesis [Unknown]
  - Urinary tract infection [Unknown]
  - Secondary progressive multiple sclerosis [Not Recovered/Not Resolved]
  - Fatigue [Unknown]
  - Urine odour abnormal [Unknown]
  - Muscular weakness [Unknown]
  - Infection [Unknown]
  - Muscle spasms [Recovered/Resolved]
  - Nephrolithiasis [Unknown]
  - Movement disorder [Unknown]
  - Gait disturbance [Unknown]
